FAERS Safety Report 25785720 (Version 1)
Quarter: 2025Q3

REPORT INFORMATION
  Report Type: Spontaneous
  Country: EU (occurrence: EU)
  Receive Date: 20250910
  Receipt Date: 20250910
  Transmission Date: 20251020
  Serious: Yes (Hospitalization, Other)
  Sender: SANOFI AVENTIS
  Company Number: None

PATIENT
  Age: 60 Year
  Sex: Male

DRUGS (1)
  1. DUPIXENT [Suspect]
     Active Substance: DUPILUMAB
     Indication: Dermatitis atopic
     Dosage: 300 MG, QOW
     Route: 058
     Dates: start: 20230524, end: 20250820

REACTIONS (3)
  - Lymphoproliferative disorder [Not Recovered/Not Resolved]
  - Anaplastic large cell lymphoma T- and null-cell types [Not Recovered/Not Resolved]
  - Lymphomatoid papulosis [Not Recovered/Not Resolved]

NARRATIVE: CASE EVENT DATE: 20250201
